FAERS Safety Report 4405173-2 (Version None)
Quarter: 2004Q3

REPORT INFORMATION
  Report Type: 
  Country: None (occurrence: None)
  Receive Date: 20040722
  Receipt Date: 20040722
  Transmission Date: 20050211
  Serious: Yes (Death, Life-Threatening, Hospitalization)
  Sender: FDA-Public Use
  Company Number: None

PATIENT
  Sex: Male
  Weight: 107.4 kg

DRUGS (16)
  1. CYTOXAN [Suspect]
     Indication: HODGKIN'S DISEASE
     Dosage: 5.35 G QDAY INTRAVENOUS BOLUS
     Route: 040
     Dates: start: 20040518, end: 20040520
  2. CARBOPLATIN [Suspect]
     Dosage: 945M QDAY
  3. ETOPOSIDE [Suspect]
     Indication: HODGKIN'S DISEASE
     Dosage: 367 MG Q.I.D. INTRAVENOUS BOLUS
     Route: 040
     Dates: start: 20040518, end: 20040521
  4. DIGOXIN [Concomitant]
  5. ACYCLOVIR [Concomitant]
  6. NYSTASIS [Concomitant]
  7. INTERFERON-ALFA [Concomitant]
  8. PANTOPRAZOLE [Concomitant]
  9. HYDROCORTISONE [Concomitant]
  10. ERYTHROPOEITIN [Concomitant]
  11. METOPROLOL [Concomitant]
  12. INSULIN [Concomitant]
  13. LEVALBUTEROL [Concomitant]
  14. IPRATROPIUM BROMIDE [Concomitant]
  15. LEUCOVROIN [Concomitant]
  16. AMPHOTERICIN B [Concomitant]

REACTIONS (10)
  - ACUTE RESPIRATORY DISTRESS SYNDROME [None]
  - ARRHYTHMIA [None]
  - DYSPNOEA [None]
  - GASTRIC ULCER HAEMORRHAGE [None]
  - GASTROINTESTINAL HAEMORRHAGE [None]
  - JC VIRUS INFECTION [None]
  - NUCLEAR MAGNETIC RESONANCE IMAGING ABNORMAL [None]
  - PERFORATED ULCER [None]
  - RENAL FAILURE ACUTE [None]
  - SHOCK [None]
